FAERS Safety Report 7108169-5 (Version None)
Quarter: 2010Q4

REPORT INFORMATION
  Report Type: 
  Country: None (occurrence: None)
  Receive Date: 20101109
  Receipt Date: 20101104
  Transmission Date: 20110411
  Serious: Yes (Other)
  Sender: FDA-Public Use
  Company Number: 2010SP048717

PATIENT
  Age: 75 Year
  Sex: Male

DRUGS (5)
  1. TEMODAL [Suspect]
     Indication: GLIOBLASTOMA MULTIFORME
     Dosage: 260 MG;PO
     Route: 048
     Dates: start: 20090801, end: 20100701
  2. ZONISAMIDE [Suspect]
     Indication: PRODUCT USED FOR UNKNOWN INDICATION
  3. FAMOTIDINE [Suspect]
     Indication: PRODUCT USED FOR UNKNOWN INDICATION
  4. STEROID [Concomitant]
  5. KEISHIKASHAKUYAKUDAIOUTOU [Concomitant]

REACTIONS (4)
  - ASCITES [None]
  - BLOOD ALBUMIN ABNORMAL [None]
  - BONE MARROW FAILURE [None]
  - HEPATIC FUNCTION ABNORMAL [None]
